FAERS Safety Report 6629665-0 (Version None)
Quarter: 2010Q1

REPORT INFORMATION
  Report Type: 
  Country: None (occurrence: None)
  Receive Date: 20100310
  Receipt Date: 20100310
  Transmission Date: 20100710
  Serious: No
  Sender: FDA-Public Use
  Company Number: None

PATIENT
  Age: 35 Year
  Sex: Female
  Weight: 92.9874 kg

DRUGS (1)
  1. AFRIN [Suspect]
     Indication: NASAL CONGESTION
     Dosage: 2-3 SPRAYS IN EACH NOSTRIL ONCE A DAY NASAL
     Route: 045
     Dates: start: 20100222, end: 20100225

REACTIONS (3)
  - FEELING ABNORMAL [None]
  - HYPOGEUSIA [None]
  - HYPOSMIA [None]
